FAERS Safety Report 7860115-2 (Version None)
Quarter: 2011Q4

REPORT INFORMATION
  Report Type: 
  Country: None (occurrence: None)
  Receive Date: 20111027
  Receipt Date: 20111024
  Transmission Date: 20120403
  Serious: Yes (Hospitalization, Other)
  Sender: FDA-Public Use
  Company Number: US-SANOFI-AVENTIS-2011SA067604

PATIENT
  Age: 74 Year
  Sex: Male
  Weight: 70.3 kg

DRUGS (33)
  1. INVESTIGATIONAL DRUG [Suspect]
     Dates: end: 20110526
  2. ACETAMINOPHEN [Concomitant]
     Indication: PAIN
     Route: 048
     Dates: start: 20100320
  3. OMEPRAZOLE [Concomitant]
     Route: 048
     Dates: start: 20100422
  4. MIDAZOLAM HCL [Concomitant]
     Route: 042
     Dates: start: 20110502, end: 20110502
  5. LEVOTHYROXINE SODIUM [Concomitant]
     Indication: HYPOTHYROIDISM
     Route: 048
     Dates: start: 20080325
  6. TRIPTORELIN [Concomitant]
     Indication: PROSTATE CANCER
     Dates: start: 20091020
  7. INVESTIGATIONAL DRUG [Suspect]
     Route: 042
     Dates: start: 20110302
  8. INVESTIGATIONAL DRUG [Suspect]
     Route: 065
     Dates: end: 20110411
  9. LINEZOLID [Concomitant]
     Route: 042
  10. GALENIC /FLUTICASONE/SALMETEROL/ [Concomitant]
     Dosage: 125 AND 25 MICORGRAMS, 2 INHALATIONS
     Route: 055
  11. METFORMIN HCL [Concomitant]
     Route: 048
     Dates: start: 20080325
  12. RAMIPRIL [Concomitant]
     Indication: HYPERTENSION
     Dates: start: 20080506
  13. PREDNISONE [Suspect]
     Route: 048
     Dates: start: 20110310
  14. BACTRIM [Concomitant]
     Indication: INFECTION
     Dosage: 800MG/160MG
     Dates: start: 20110427
  15. TRIMETHOPRIM [Concomitant]
     Indication: INFECTION
     Dosage: 800MG/160MG
     Dates: start: 20110127
  16. CYANOCOBALAMIN [Concomitant]
     Indication: NUTRITIONAL SUPPORT
     Route: 048
  17. HYDROMORPHONE HCL [Concomitant]
     Indication: PAIN
     Dosage: EVERY 4 HOURS AS NEEDED
     Route: 048
     Dates: start: 20100717
  18. GLYBURIDE [Concomitant]
     Route: 048
     Dates: start: 20100721
  19. DOCETAXEL [Suspect]
     Route: 041
     Dates: start: 20110512, end: 20110512
  20. HYDROCORTISONE [Concomitant]
     Route: 042
  21. DEXAMETHASONE [Concomitant]
     Route: 048
  22. ALBUTEROL SULFATE AUTOHALER [Concomitant]
     Dosage: GIVEN EVERY 4-6 HOURS
     Route: 055
     Dates: start: 20080325
  23. ARTHROTEC [Concomitant]
     Route: 048
     Dates: start: 20100717
  24. ASPIRIN [Concomitant]
     Indication: PROPHYLAXIS
     Route: 048
     Dates: start: 20080506
  25. ATORVASTATIN CALCIUM [Concomitant]
     Route: 048
     Dates: start: 20080610
  26. URSODIOL [Concomitant]
     Route: 048
     Dates: start: 20100707
  27. PROCHLORPERAZINE [Concomitant]
     Indication: PROPHYLAXIS
     Route: 048
     Dates: start: 20110302
  28. LIDOCAINE [Concomitant]
     Dates: start: 20110512, end: 20110512
  29. DOCETAXEL [Suspect]
     Route: 041
     Dates: start: 20110310, end: 20110310
  30. DOCETAXEL [Suspect]
     Route: 041
     Dates: start: 20110411, end: 20110411
  31. FUROSEMIDE [Concomitant]
     Route: 048
     Dates: start: 20110407
  32. SENNA ALEXANDRINA DRY EXTRACT/SENNA ALEXANDRINA FRUIT EXTRACT [Concomitant]
     Indication: CONSTIPATION
     Dates: start: 20110221
  33. LIDOCAINE [Concomitant]
     Dates: start: 20110512, end: 20110512

REACTIONS (1)
  - PANCREATITIS [None]
